FAERS Safety Report 9686602 (Version 10)
Quarter: 2015Q3

REPORT INFORMATION
  Report Type: Spontaneous
  Country: US (occurrence: US)
  Receive Date: 20131113
  Receipt Date: 20150716
  Transmission Date: 20151125
  Serious: Yes (Hospitalization, Other)
  Sender: FDA-Public Use
  Company Number: US-GLAXOSMITHKLINE-A1049496A

PATIENT
  Age: 66 Year
  Sex: Female

DRUGS (7)
  1. COUMADIN [Concomitant]
     Active Substance: WARFARIN SODIUM
  2. FLOLAN [Suspect]
     Active Substance: EPOPROSTENOL SODIUM
     Indication: LUNG DISORDER
     Dosage: UNK
     Dates: start: 20011210
  3. FLOLAN [Suspect]
     Active Substance: EPOPROSTENOL SODIUM
     Dosage: 46 NG/KG/MIN, CONCENTRATION 45,000 NG/ML, VIAL STRENGTH 1.5 MG, 75 ML/DAY
     Route: 042
  4. FLOLAN [Suspect]
     Active Substance: EPOPROSTENOL SODIUM
     Indication: SARCOIDOSIS
     Dosage: UNK
     Dates: start: 20011210
  5. FLOLAN [Suspect]
     Active Substance: EPOPROSTENOL SODIUM
     Indication: PULMONARY HYPERTENSION
     Dosage: UNK
     Dates: start: 20011210
  6. FLOLAN [Suspect]
     Active Substance: EPOPROSTENOL SODIUM
     Indication: COR PULMONALE CHRONIC
     Dosage: 34 NG/KG/MIN, CONCENTRATION 45,000 NG/ML, VIAL STRENGTH 1.5 MG34 NG/KG/MIN CONTINOUSLY, CONCENT[...]
     Route: 042
     Dates: start: 20011210
  7. FLOLAN [Suspect]
     Active Substance: EPOPROSTENOL SODIUM
     Dosage: UNK
     Dates: start: 20011210

REACTIONS (11)
  - Joint dislocation [Unknown]
  - Dyspnoea [Unknown]
  - Bronchitis [Unknown]
  - Fall [Unknown]
  - Pulmonary arterial hypertension [Unknown]
  - Epistaxis [Unknown]
  - Weight decreased [Unknown]
  - Hospitalisation [Recovered/Resolved]
  - Pneumonia [Unknown]
  - Catheterisation cardiac [Unknown]
  - Medical device complication [Unknown]

NARRATIVE: CASE EVENT DATE: 20140720
